FAERS Safety Report 23167665 (Version 2)
Quarter: 2023Q4

REPORT INFORMATION
  Report Type: Spontaneous
  Country: US (occurrence: US)
  Receive Date: 20231109
  Receipt Date: 20231209
  Transmission Date: 20240109
  Serious: No
  Sender: FDA-Public Use
  Company Number: US-SA-SAC20231107001661

PATIENT
  Age: 5 Year
  Sex: Male
  Weight: 19.4 kg

DRUGS (3)
  1. DUPIXENT [Suspect]
     Active Substance: DUPILUMAB
     Indication: Dermatitis atopic
     Dosage: 300 MG, Q4W
     Route: 058
     Dates: start: 20230801
  2. TACROLIMUS [Concomitant]
     Active Substance: TACROLIMUS
     Dosage: UNK
  3. DESONIDE [Concomitant]
     Active Substance: DESONIDE
     Dosage: UNK

REACTIONS (2)
  - Ear tube insertion [Unknown]
  - Myringotomy [Unknown]

NARRATIVE: CASE EVENT DATE: 20230101
